FAERS Safety Report 14421383 (Version 3)
Quarter: 2019Q1

REPORT INFORMATION
  Report Type: Spontaneous
  Country: CL (occurrence: CL)
  Receive Date: 20180122
  Receipt Date: 20190128
  Transmission Date: 20190417
  Serious: Yes (Hospitalization, Other)
  Sender: FDA-Public Use
  Company Number: CL-BIOMARINAP-CL-2018-116823

PATIENT
  Age: 22 Year
  Sex: Female
  Weight: 44 kg

DRUGS (2)
  1. ALDURAZYME [Suspect]
     Active Substance: LARONIDASE
     Indication: MUCOPOLYSACCHARIDOSIS I
     Dosage: 0.52 MG/KG, QW
     Route: 041
     Dates: start: 20080101
  2. ALDURAZYME [Suspect]
     Active Substance: LARONIDASE
     Dosage: 8 DOSAGE FORM, QW
     Route: 041

REACTIONS (19)
  - Abdominal pain [Recovered/Resolved]
  - Corneal transplant [Recovered/Resolved]
  - Hypertension [Recovered/Resolved]
  - Nasal congestion [Recovering/Resolving]
  - Cough [Recovering/Resolving]
  - Vomiting [Recovered/Resolved]
  - Bronchitis [Recovering/Resolving]
  - Sinusitis [Not Recovered/Not Resolved]
  - Rotavirus infection [Recovered/Resolved]
  - Visual acuity reduced [Not Recovered/Not Resolved]
  - Nephrolithiasis [Recovered/Resolved]
  - Pyrexia [Recovering/Resolving]
  - Depression [Not Recovered/Not Resolved]
  - Breast pain [Unknown]
  - Breast mass [Not Recovered/Not Resolved]
  - Back pain [Recovered/Resolved]
  - Nasal congestion [Not Recovered/Not Resolved]
  - Cough [Not Recovered/Not Resolved]
  - Nasopharyngitis [Not Recovered/Not Resolved]

NARRATIVE: CASE EVENT DATE: 20160415
